FAERS Safety Report 16754890 (Version 1)
Quarter: 2019Q4

REPORT INFORMATION
  Report Type: Spontaneous
  Country: US (occurrence: US)
  Receive Date: 20190828
  Receipt Date: 20190828
  Transmission Date: 20200122
  Serious: Yes (Disabling, Congenital Anomaly)
  Sender: FDA-Public Use
  Company Number: None

PATIENT
  Age: 50 Year
  Weight: 67.5 kg

DRUGS (13)
  1. HCTZ [Concomitant]
     Active Substance: HYDROCHLOROTHIAZIDE
  2. SINGULAIR [Concomitant]
     Active Substance: MONTELUKAST SODIUM
  3. TIZANADINE [Concomitant]
     Active Substance: TIZANIDINE
  4. GABAPENTIN. [Suspect]
     Active Substance: GABAPENTIN
     Indication: CHRONIC FATIGUE SYNDROME
  5. TRINTELLIX [Concomitant]
     Active Substance: VORTIOXETINE HYDROBROMIDE
  6. METOPROLOL. [Concomitant]
     Active Substance: METOPROLOL
  7. PROAIR HFA [Concomitant]
     Active Substance: ALBUTEROL SULFATE
  8. CBD OIL [Concomitant]
     Active Substance: CANNABIDIOL\HERBALS
  9. GABAPENTIN. [Suspect]
     Active Substance: GABAPENTIN
     Indication: FIBROMYALGIA
  10. REMERON [Concomitant]
     Active Substance: MIRTAZAPINE
  11. FLONASE [Concomitant]
     Active Substance: FLUTICASONE PROPIONATE
  12. ZYRTEC [Concomitant]
     Active Substance: CETIRIZINE HYDROCHLORIDE
  13. ASHWAGANDHA [Concomitant]
     Active Substance: HERBALS

REACTIONS (13)
  - Exposure during pregnancy [None]
  - Maternal drugs affecting foetus [None]
  - Depression [None]
  - Drug withdrawal syndrome neonatal [None]
  - Anxiety [None]
  - Attention deficit/hyperactivity disorder [None]
  - Pregnancy [None]
  - Oppositional defiant disorder [None]
  - Weight increased [None]
  - Post-traumatic stress disorder [None]
  - Autism spectrum disorder [None]
  - Amnesia [None]
  - Hyperacusis [None]

NARRATIVE: CASE EVENT DATE: 20111206
